FAERS Safety Report 16905597 (Version 1)
Quarter: 2019Q4

REPORT INFORMATION
  Report Type: Report from Study
  Country: US (occurrence: US)
  Receive Date: 20191010
  Receipt Date: 20191010
  Transmission Date: 20200122
  Serious: Yes (Other)
  Sender: FDA-Public Use
  Company Number: US-GILEAD-2019-0432581

PATIENT
  Age: 72 Year
  Sex: Male

DRUGS (2)
  1. IDELALISIB [Suspect]
     Active Substance: IDELALISIB
     Indication: PRODUCT USED FOR UNKNOWN INDICATION
     Route: 065
  2. IMBRUVICA [Suspect]
     Active Substance: IBRUTINIB
     Indication: CHRONIC LYMPHOCYTIC LEUKAEMIA
     Dosage: 1 DOSAGE FORM, QD
     Route: 065
     Dates: start: 2016, end: 2018

REACTIONS (7)
  - Hypertension [Unknown]
  - Atrial fibrillation [Recovered/Resolved with Sequelae]
  - Atrial flutter [Recovered/Resolved]
  - Drug intolerance [Unknown]
  - Pain [Recovered/Resolved]
  - Hepatic enzyme increased [Unknown]
  - Muscle spasms [Recovered/Resolved]

NARRATIVE: CASE EVENT DATE: 2018
